FAERS Safety Report 9276495 (Version 1)
Quarter: 2013Q2

REPORT INFORMATION
  Report Type: Spontaneous
  Country: US (occurrence: US)
  Receive Date: 20130507
  Receipt Date: 20130507
  Transmission Date: 20140414
  Serious: No
  Sender: FDA-Public Use
  Company Number: US-PFIZER INC-2013139033

PATIENT
  Age: 42 Year
  Sex: Female
  Weight: 88.44 kg

DRUGS (11)
  1. GEODON [Suspect]
     Indication: BIPOLAR DISORDER
     Dosage: 40 MG, 3X/DAY
  2. GEODON [Suspect]
     Dosage: 40 MG, 3X/DAY
     Dates: start: 201212
  3. REMERON [Suspect]
     Indication: BIPOLAR DISORDER
     Dosage: UNK
  4. TOPAMAX [Suspect]
     Indication: BIPOLAR DISORDER
     Dosage: UNK
  5. ABILIFY [Suspect]
     Indication: BIPOLAR DISORDER
     Dosage: 30 MG, 2X/DAY
  6. LAMICTAL [Suspect]
     Indication: BIPOLAR DISORDER
     Dosage: UNK
  7. CYMBALTA [Suspect]
     Indication: ANHEDONIA
     Dosage: 50 MG, 1X/DAY
  8. CYMBALTA [Suspect]
     Indication: DEPRESSION
  9. CYMBALTA [Suspect]
     Indication: MYALGIA
  10. CYMBALTA [Suspect]
     Indication: BONE PAIN
  11. KLONOPIN [Suspect]
     Indication: GENERALISED ANXIETY DISORDER
     Dosage: 1 MG IN MORNING AND 2 MG AT BED TIME

REACTIONS (5)
  - Drug ineffective [Unknown]
  - Weight increased [Unknown]
  - Vitamin B12 decreased [Unknown]
  - Blood potassium decreased [Unknown]
  - Blood iron decreased [Unknown]
